FAERS Safety Report 10837940 (Version 2)
Quarter: 2015Q1

REPORT INFORMATION
  Report Type: Spontaneous
  Country: US (occurrence: US)
  Receive Date: 20150219
  Receipt Date: 20150316
  Transmission Date: 20150721
  Serious: No
  Sender: FDA-Public Use
  Company Number: US-GLAXOSMITHKLINE-US2015GSK022282

PATIENT
  Sex: Female

DRUGS (19)
  1. MEKINIST [Suspect]
     Active Substance: TRAMETINIB DIMETHYL SULFOXIDE
     Indication: MALIGNANT MELANOMA
     Dosage: 2 MG, QD
     Route: 048
     Dates: start: 20150101
  2. TAFINLAR [Suspect]
     Active Substance: DABRAFENIB MESYLATE
     Dosage: 150 MG, BID
     Route: 048
     Dates: start: 20150212
  3. HYDROCODONE BITARTRATE AND ACETAMINOPHEN [Concomitant]
     Active Substance: ACETAMINOPHEN\HYDROCODONE BITARTRATE
  4. TEGRETOL [Concomitant]
     Active Substance: CARBAMAZEPINE
  5. XANAX [Concomitant]
     Active Substance: ALPRAZOLAM
  6. COPAXONE [Concomitant]
     Active Substance: GLATIRAMER ACETATE
  7. VENLAFAXINE [Concomitant]
     Active Substance: VENLAFAXINE HYDROCHLORIDE
  8. TURMERIC [Concomitant]
     Active Substance: TURMERIC
  9. NUVIGIL [Concomitant]
     Active Substance: ARMODAFINIL
  10. TRILEPTAL [Concomitant]
     Active Substance: OXCARBAZEPINE
  11. LYRICA [Concomitant]
     Active Substance: PREGABALIN
  12. ADVIL [Concomitant]
     Active Substance: IBUPROFEN
  13. DEXAMETHASONE. [Concomitant]
     Active Substance: DEXAMETHASONE
  14. DRISDOL [Concomitant]
     Active Substance: ERGOCALCIFEROL
  15. MEKINIST [Suspect]
     Active Substance: TRAMETINIB DIMETHYL SULFOXIDE
     Dosage: 2 MG, QD
     Route: 048
     Dates: start: 20150212
  16. ZOFRAN [Concomitant]
     Active Substance: ONDANSETRON HYDROCHLORIDE
  17. TECFIDERA [Concomitant]
     Active Substance: DIMETHYL FUMARATE
  18. BIOTIN [Concomitant]
     Active Substance: BIOTIN
  19. TAFINLAR [Suspect]
     Active Substance: DABRAFENIB MESYLATE
     Indication: MALIGNANT MELANOMA
     Dosage: 150 MG, BID
     Route: 048
     Dates: start: 20150101

REACTIONS (2)
  - Constipation [Unknown]
  - Drug ineffective [Unknown]
